FAERS Safety Report 8237778-5 (Version None)
Quarter: 2012Q1

REPORT INFORMATION
  Report Type: 
  Country: None (occurrence: None)
  Receive Date: 20120327
  Receipt Date: 20120321
  Transmission Date: 20120608
  Serious: Yes (Hospitalization)
  Sender: FDA-Public Use
  Company Number: JP-VERTEX PHARMACEUTICALS INC.-AE-2012-001917

PATIENT
  Sex: Female

DRUGS (9)
  1. PEGINTERFERON ALFA-2B [Concomitant]
     Indication: HEPATITIS C
     Route: 051
     Dates: start: 20120119, end: 20120123
  2. REBETOL [Concomitant]
     Route: 048
     Dates: start: 20120202
  3. OMEPRAZOLE [Concomitant]
     Route: 048
  4. SOLDEM [Concomitant]
     Dates: start: 20120123, end: 20120125
  5. TELAVIC (TELAPREVIR) [Suspect]
     Indication: HEPATITIS C
     Route: 048
     Dates: start: 20120119, end: 20120123
  6. VEEN D [Concomitant]
     Dates: start: 20120124, end: 20120127
  7. NORVASC [Concomitant]
     Route: 048
  8. PEGINTERFERON ALFA-2B [Concomitant]
     Route: 051
     Dates: start: 20120202
  9. REBETOL [Concomitant]
     Indication: HEPATITIS C
     Route: 048
     Dates: start: 20120119, end: 20120123

REACTIONS (1)
  - BLOOD CREATININE INCREASED [None]
